FAERS Safety Report 19574388 (Version 3)
Quarter: 2021Q3

REPORT INFORMATION
  Report Type: Report from Study
  Country: TR (occurrence: TR)
  Receive Date: 20210719
  Receipt Date: 20210802
  Transmission Date: 20211014
  Serious: Yes (Other)
  Sender: FDA-Public Use
  Company Number: TR-ROCHE-2868809

PATIENT
  Age: 59 Year
  Sex: Male
  Weight: 72 kg

DRUGS (3)
  1. AUGMENTIN [Concomitant]
     Active Substance: AMOXICILLIN\CLAVULANATE POTASSIUM
     Indication: C-REACTIVE PROTEIN INCREASED
     Route: 048
     Dates: start: 20210709
  2. CIPRO [Concomitant]
     Active Substance: CIPROFLOXACIN HYDROCHLORIDE
     Indication: C-REACTIVE PROTEIN INCREASED
     Route: 048
     Dates: start: 20210709
  3. ATEZOLIZUMAB. [Suspect]
     Active Substance: ATEZOLIZUMAB
     Indication: NON-SMALL CELL LUNG CANCER METASTATIC
     Dosage: ON 06/JUL/2021, HE RECEIVED MOST RECENT DOSE OF ATEZOLIZUMAB PRIOR TO ONSET OF SERIOUS ADVERSE EVENT
     Route: 058

REACTIONS (1)
  - Pancytopenia [Recovering/Resolving]

NARRATIVE: CASE EVENT DATE: 20210709
